FAERS Safety Report 9359951 (Version 1)
Quarter: 2013Q2

REPORT INFORMATION
  Report Type: Spontaneous
  Country: US (occurrence: None)
  Receive Date: 20130608
  Receipt Date: 20130608
  Transmission Date: 20140414
  Serious: No
  Sender: FDA-Public Use
  Company Number: 2013CT000029

PATIENT
  Age: 59 Year
  Sex: Female

DRUGS (11)
  1. KORLYM [Suspect]
     Indication: CUSHING^S SYNDROME
     Route: 048
  2. CEFDINIR [Concomitant]
  3. FLUCONAZOLE [Concomitant]
  4. XANAX [Concomitant]
  5. PROMETHAZINE [Concomitant]
  6. DEXTROMETHORPHAN [Concomitant]
  7. ANTIBIOTICS [Concomitant]
  8. LANTUS [Concomitant]
  9. LOSARTAN POTASSIUM [Concomitant]
  10. BABY ASPIRIN [Concomitant]
  11. METFORMIN [Concomitant]

REACTIONS (8)
  - Muscle spasms [None]
  - Oedema mouth [None]
  - Stomatitis [None]
  - Oropharyngeal pain [None]
  - Insomnia [None]
  - Dysphonia [None]
  - Dry mouth [None]
  - Nausea [None]
